FAERS Safety Report 22621283 (Version 12)
Quarter: 2023Q4

REPORT INFORMATION
  Report Type: Spontaneous
  Country: TR (occurrence: TR)
  Receive Date: 20230620
  Receipt Date: 20231221
  Transmission Date: 20240110
  Serious: Yes (Other)
  Sender: FDA-Public Use
  Company Number: TR-PFIZER INC-202300221855

PATIENT
  Age: 51 Year
  Sex: Male
  Weight: 77 kg

DRUGS (4)
  1. ATIVAN [Suspect]
     Active Substance: LORAZEPAM
     Indication: Anxiety disorder
     Dosage: 1 MG
     Route: 060
     Dates: start: 20210622, end: 20220707
  2. ATIVAN [Suspect]
     Active Substance: LORAZEPAM
     Indication: Panic attack
  3. VITAMIN B12 [Concomitant]
     Active Substance: CYANOCOBALAMIN
     Dosage: UNK
  4. CYANOCOBALAMIN [Concomitant]
     Active Substance: CYANOCOBALAMIN
     Dosage: UNK

REACTIONS (15)
  - Narcolepsy [Not Recovered/Not Resolved]
  - Dementia [Unknown]
  - Memory impairment [Not Recovered/Not Resolved]
  - Depressed mood [Not Recovered/Not Resolved]
  - Distractibility [Not Recovered/Not Resolved]
  - Daydreaming [Not Recovered/Not Resolved]
  - Mental disorder [Unknown]
  - Paranoia [Unknown]
  - Compulsive shopping [Unknown]
  - Disturbance in attention [Unknown]
  - Road traffic accident [Unknown]
  - Weight decreased [Unknown]
  - Fatigue [Unknown]
  - Impaired work ability [Unknown]
  - Drug ineffective [Unknown]

NARRATIVE: CASE EVENT DATE: 20220601
